FAERS Safety Report 16168410 (Version 1)
Quarter: 2019Q2

REPORT INFORMATION
  Report Type: Spontaneous
  Country: US (occurrence: US)
  Receive Date: 20190408
  Receipt Date: 20190408
  Transmission Date: 20190711
  Serious: No
  Sender: FDA-Public Use
  Company Number: US-BAYER-2019-069723

PATIENT
  Age: 83 Year
  Sex: Male
  Weight: 79 kg

DRUGS (2)
  1. ISOSORBIDE. [Concomitant]
     Active Substance: ISOSORBIDE
     Indication: PAIN IN EXTREMITY
  2. MIRALAX [Suspect]
     Active Substance: POLYETHYLENE GLYCOL 3350
     Indication: GASTROINTESTINAL DISORDER
     Dosage: 1 DF, QD
     Route: 048
     Dates: start: 201903

REACTIONS (2)
  - Diarrhoea [None]
  - Anal incontinence [Not Recovered/Not Resolved]
